FAERS Safety Report 19707874 (Version 1)
Quarter: 2021Q3

REPORT INFORMATION
  Report Type: Spontaneous
  Country: US (occurrence: US)
  Receive Date: 20210816
  Receipt Date: 20210816
  Transmission Date: 20211014
  Serious: No
  Sender: FDA-Public Use
  Company Number: US-BAYER-2021-193906

PATIENT

DRUGS (5)
  1. LIPITOR [Suspect]
     Active Substance: ATORVASTATIN CALCIUM
  2. CODEINE [Concomitant]
     Active Substance: CODEINE
  3. MACRODANTIN [Concomitant]
     Active Substance: NITROFURANTOIN
  4. PRAVASTATIN. [Concomitant]
     Active Substance: PRAVASTATIN
  5. CIPRO [Suspect]
     Active Substance: CIPROFLOXACIN HYDROCHLORIDE
     Route: 048

REACTIONS (1)
  - Drug hypersensitivity [None]
